FAERS Safety Report 16299388 (Version 1)
Quarter: 2019Q2

REPORT INFORMATION
  Report Type: Spontaneous
  Country: US (occurrence: US)
  Receive Date: 20190405
  Receipt Date: 20190405
  Transmission Date: 20190711
  Serious: Yes (Other)
  Sender: FDA-Public Use
  Company Number: None

PATIENT
  Age: 71 Year
  Sex: Male
  Weight: 97.07 kg

DRUGS (2)
  1. LEXISCAN [Suspect]
     Active Substance: REGADENOSON
     Indication: DYSPNOEA
     Dosage: 0.4MG/5 ML 1 IV
     Route: 042
     Dates: start: 20190314, end: 20190315
  2. LEXISCAN [Suspect]
     Active Substance: REGADENOSON
     Indication: ELECTROCARDIOGRAM ABNORMAL
     Dosage: 0.4MG/5 ML 1 IV
     Route: 042
     Dates: start: 20190314, end: 20190315

REACTIONS (2)
  - Bradycardia [None]
  - Hypotension [None]

NARRATIVE: CASE EVENT DATE: 20190315
